FAERS Safety Report 13835263 (Version 1)
Quarter: 2017Q3

REPORT INFORMATION
  Report Type: Other
  Country: CZ (occurrence: CZ)
  Receive Date: 20170804
  Receipt Date: 20170804
  Transmission Date: 20171127
  Serious: Yes (Other)
  Sender: FDA-Public Use
  Company Number: CZ-APOTEX-2017AP016223

PATIENT
  Age: 17 Year
  Sex: Female
  Weight: 54 kg

DRUGS (2)
  1. APO-CETIRIZINE 10MG TABS [Suspect]
     Active Substance: CETIRIZINE HYDROCHLORIDE
     Indication: INTENTIONAL PRODUCT MISUSE
     Dosage: UNK
     Route: 065
     Dates: start: 20151105
  2. STOPEX [Suspect]
     Active Substance: DEXTROMETHORPHAN HYDROBROMIDE
     Indication: INTENTIONAL PRODUCT MISUSE
     Dosage: UNK, 10 TABLETS
     Route: 065
     Dates: start: 20151105, end: 20151105

REACTIONS (4)
  - Fatigue [Unknown]
  - Overdose [Unknown]
  - Medication error [Unknown]
  - Intentional product misuse [Unknown]
